FAERS Safety Report 22331867 (Version 3)
Quarter: 2023Q2

REPORT INFORMATION
  Report Type: Spontaneous
  Country: MT (occurrence: MT)
  Receive Date: 20230517
  Receipt Date: 20230629
  Transmission Date: 20230721
  Serious: Yes (Hospitalization, Other)
  Sender: FDA-Public Use
  Company Number: MT-ADM-2052023

PATIENT
  Age: 60 Year
  Sex: Female

DRUGS (1)
  1. PIPERACILLIN SODIUM\TAZOBACTAM SODIUM [Suspect]
     Active Substance: PIPERACILLIN SODIUM\TAZOBACTAM SODIUM
     Indication: Osteomyelitis
     Dosage: 4.5 GRAM, 3 TIMES A DAY (4.5 GRAM 8 HOURLY IV)
     Route: 042
     Dates: start: 20230502, end: 20230502

REACTIONS (4)
  - Tinnitus [Not Recovered/Not Resolved]
  - Pruritus [Not Recovered/Not Resolved]
  - Headache [Not Recovered/Not Resolved]
  - Infusion site pruritus [Not Recovered/Not Resolved]

NARRATIVE: CASE EVENT DATE: 20230502
